FAERS Safety Report 5672146-1 (Version None)
Quarter: 2008Q1

REPORT INFORMATION
  Report Type: 
  Country: None (occurrence: None)
  Receive Date: 20080319
  Receipt Date: 20080311
  Transmission Date: 20080703
  Serious: Yes (Hospitalization)
  Sender: FDA-Public Use
  Company Number: US-JNJFOC-20080105908

PATIENT
  Sex: Male
  Weight: 85.28 kg

DRUGS (8)
  1. LEVAQUIN [Suspect]
     Indication: PROPHYLAXIS
     Route: 048
  2. LEVAQUIN [Suspect]
     Indication: PREMEDICATION
     Route: 048
  3. DIAVAN [Concomitant]
     Route: 048
  4. ALLOPURINOL [Concomitant]
     Route: 048
  5. VYTORIN [Concomitant]
     Route: 048
  6. PROSCAR [Concomitant]
     Indication: BENIGN PROSTATIC HYPERPLASIA
     Route: 048
  7. OMEPRAZOLE [Concomitant]
     Route: 048
  8. TOPROL-XL [Concomitant]
     Indication: TACHYCARDIA
     Route: 048

REACTIONS (3)
  - COLITIS [None]
  - HYPERSENSITIVITY [None]
  - TREMOR [None]
